FAERS Safety Report 16154699 (Version 3)
Quarter: 2019Q2

REPORT INFORMATION
  Report Type: Report from Study
  Country: US (occurrence: US)
  Receive Date: 20190403
  Receipt Date: 20190522
  Transmission Date: 20190711
  Serious: Yes (Other)
  Sender: FDA-Public Use
  Company Number: US-TESAROUBC-2019-TSO01345-US

PATIENT
  Age: 62 Year
  Sex: Female
  Weight: 88 kg

DRUGS (3)
  1. ZEJULA [Suspect]
     Active Substance: NIRAPARIB
     Indication: OVARIAN CANCER
     Dosage: 300 MG, QD, AT 10 PM
     Route: 048
     Dates: start: 20190320, end: 20190408
  2. ZEJULA [Suspect]
     Active Substance: NIRAPARIB
     Dosage: 200 MG, QD
     Route: 048
     Dates: start: 20190504
  3. METOPROLOL. [Concomitant]
     Active Substance: METOPROLOL
     Indication: PRODUCT USED FOR UNKNOWN INDICATION
     Dosage: 12.5 MG, QD
     Route: 065

REACTIONS (25)
  - Atelectasis [Unknown]
  - Gastrooesophageal reflux disease [Unknown]
  - Plantar erythema [Recovering/Resolving]
  - Bone pain [Unknown]
  - Burning sensation [Unknown]
  - Nervousness [Unknown]
  - Rash [Recovered/Resolved]
  - Anxiety [Unknown]
  - Insomnia [Unknown]
  - Erythema [Recovered/Resolved]
  - Carbohydrate antigen 125 increased [Unknown]
  - Dyspnoea [Unknown]
  - Nausea [Not Recovered/Not Resolved]
  - Pruritus [Recovered/Resolved]
  - Platelet count decreased [Recovered/Resolved]
  - Arthralgia [Unknown]
  - Dizziness [Unknown]
  - Red blood cell count decreased [Unknown]
  - Pain in extremity [Unknown]
  - Pleural effusion [Unknown]
  - Constipation [Unknown]
  - Intentional product misuse [Unknown]
  - Neuropathy peripheral [Unknown]
  - Heart rate increased [Not Recovered/Not Resolved]
  - Peripheral swelling [Unknown]

NARRATIVE: CASE EVENT DATE: 201903
